FAERS Safety Report 5531249-2 (Version None)
Quarter: 2007Q4

REPORT INFORMATION
  Report Type: 
  Country: None (occurrence: None)
  Receive Date: 20071127
  Receipt Date: 20071115
  Transmission Date: 20080405
  Serious: Yes (Life-Threatening, Hospitalization)
  Sender: FDA-Public Use
  Company Number: GXKR2007DK09900

PATIENT
  Age: 60 Year
  Sex: Male
  Weight: 84 kg

DRUGS (3)
  1. SIMVASTATIN [Suspect]
     Indication: HYPERCHOLESTEROLAEMIA
     Dosage: 20 MG, DAILY, ORAL
     Route: 048
     Dates: end: 20070620
  2. METHOTREXATE [Suspect]
     Indication: PSORIATIC ARTHROPATHY
     Dosage: 20 MG WEEKLY, INJECTION NOS
     Dates: start: 20051128, end: 20070323
  3. FORTZAAR(HYDROCHLORIDE, LOSARTAN POTASSIUM) [Suspect]
     Indication: HYPERTENSION
     Dosage: ORAL
     Route: 048
     Dates: end: 20070620

REACTIONS (3)
  - GRANULOCYTOPENIA [None]
  - HEPATIC CIRRHOSIS [None]
  - HEPATIC FAILURE [None]
